FAERS Safety Report 25347677 (Version 1)
Quarter: 2025Q2

REPORT INFORMATION
  Report Type: Spontaneous
  Country: US (occurrence: None)
  Receive Date: 20250522
  Receipt Date: 20250522
  Transmission Date: 20250716
  Serious: No
  Sender: FDA-CTU
  Company Number: None

PATIENT
  Age: 35 Year
  Sex: Female
  Weight: 72 kg

DRUGS (1)
  1. ZYRTEC [Suspect]
     Active Substance: CETIRIZINE HYDROCHLORIDE
     Indication: Ear infection
     Dates: start: 20200301, end: 20211201

REACTIONS (5)
  - Pruritus [None]
  - Insomnia [None]
  - Drug ineffective [None]
  - Haemorrhage [None]
  - Withdrawal syndrome [None]
